FAERS Safety Report 8646570 (Version 8)
Quarter: 2013Q3

REPORT INFORMATION
  Report Type: Spontaneous
  Country: US (occurrence: US)
  Receive Date: 20120702
  Receipt Date: 20130910
  Transmission Date: 20140515
  Serious: Yes (Hospitalization, Disabling, Other)
  Sender: FDA-Public Use
  Company Number: US-009507513-1206USA04850

PATIENT
  Sex: Female

DRUGS (6)
  1. FOSAMAX [Suspect]
     Indication: OSTEOPENIA
     Dosage: 70 MG, UNK
     Route: 048
     Dates: end: 20060401
  2. CORTISONE [Concomitant]
     Indication: COLITIS ULCERATIVE
     Dosage: UNK
     Dates: start: 1978
  3. CALCIUM (UNSPECIFIED) [Concomitant]
     Dosage: UNK
     Dates: start: 1980
  4. VITAMINS (UNSPECIFIED) [Concomitant]
     Dosage: UNK
     Dates: start: 1980
  5. ESTRADERM [Concomitant]
     Indication: MENOPAUSAL SYMPTOMS
     Dosage: UNK
     Dates: start: 1997, end: 2005
  6. NEXIUM [Concomitant]
     Indication: GASTROOESOPHAGEAL REFLUX DISEASE

REACTIONS (40)
  - Femur fracture [Unknown]
  - Open reduction of fracture [Unknown]
  - Osteoporosis [Unknown]
  - Low turnover osteopathy [Unknown]
  - Open reduction of fracture [Unknown]
  - Cholecystectomy [Unknown]
  - Device failure [Not Recovered/Not Resolved]
  - Spinal laminectomy [Not Recovered/Not Resolved]
  - Spinal operation [Unknown]
  - Spinal operation [Unknown]
  - Surgery [Not Recovered/Not Resolved]
  - Ileectomy [Unknown]
  - Spinal fracture [Unknown]
  - Dental implantation [Unknown]
  - Arthritis [Unknown]
  - Large intestinal stenosis [Not Recovered/Not Resolved]
  - Diabetes mellitus [Not Recovered/Not Resolved]
  - Female genital tract fistula [Not Recovered/Not Resolved]
  - Haematuria [Not Recovered/Not Resolved]
  - Fall [Unknown]
  - Pelvic fracture [Unknown]
  - Fall [Unknown]
  - Fall [Unknown]
  - Anaemia postoperative [Unknown]
  - Confusional state [Recovered/Resolved]
  - Dementia [Recovered/Resolved]
  - Hypertension [Unknown]
  - Cerebral small vessel ischaemic disease [Unknown]
  - Fracture delayed union [Not Recovered/Not Resolved]
  - Wrist fracture [Recovering/Resolving]
  - Erythema nodosum [Unknown]
  - Crohn^s disease [Not Recovered/Not Resolved]
  - Coronary artery disease [Unknown]
  - Lumbar spinal stenosis [Unknown]
  - Spinal cord compression [Unknown]
  - Blood cholesterol increased [Unknown]
  - Cervical vertebral fracture [Unknown]
  - Headache [Unknown]
  - Constipation [Unknown]
  - Back pain [Not Recovered/Not Resolved]
